FAERS Safety Report 16379043 (Version 1)
Quarter: 2019Q2

REPORT INFORMATION
  Report Type: Report from Study
  Country: JP (occurrence: JP)
  Receive Date: 20190531
  Receipt Date: 20190531
  Transmission Date: 20190711
  Serious: Yes (Hospitalization)
  Sender: FDA-Public Use
  Company Number: JP-PFIZER INC-2019080914

PATIENT
  Age: 69 Year
  Sex: Female
  Weight: 42 kg

DRUGS (19)
  1. XELJANZ [Suspect]
     Active Substance: TOFACITINIB CITRATE
     Indication: RHEUMATOID ARTHRITIS
     Dosage: 5 MG, 2X/DAY
     Route: 048
     Dates: start: 20160223, end: 20180808
  2. PREDONINE [Concomitant]
     Active Substance: PREDNISOLONE
     Dosage: 5 MG, DAILY
  3. CARBOCISTEINE [Concomitant]
     Active Substance: CARBOCYSTEINE
     Dosage: UNK
     Route: 048
     Dates: start: 20171121
  4. XYZAL [Concomitant]
     Active Substance: LEVOCETIRIZINE DIHYDROCHLORIDE
     Dosage: UNK
     Route: 048
     Dates: start: 20171121
  5. CELECOX [Concomitant]
     Active Substance: CELECOXIB
     Route: 048
  6. REBAMIPIDE [Concomitant]
     Active Substance: REBAMIPIDE
     Route: 048
  7. CARERAM [Concomitant]
     Active Substance: IGURATIMOD
     Dosage: UNK
  8. MOHRUS [Concomitant]
     Active Substance: KETOPROFEN
     Dosage: UNK
     Route: 062
     Dates: start: 20161011
  9. TRAMCET [Concomitant]
     Active Substance: ACETAMINOPHEN\TRAMADOL
     Dosage: UNK
     Route: 048
     Dates: start: 20160809
  10. RIMATIL [Concomitant]
     Active Substance: BUCILLAMINE
     Dosage: UNK
     Dates: start: 20160614
  11. RISEDRONATE NA [Concomitant]
     Active Substance: RISEDRONATE SODIUM
     Route: 048
  12. EDIROL [Concomitant]
     Active Substance: ELDECALCITOL
     Dosage: UNK
     Route: 048
     Dates: start: 20180227
  13. TAKEPRON [Concomitant]
     Active Substance: LANSOPRAZOLE
     Route: 048
  14. LENDORMIN [Concomitant]
     Active Substance: BROTIZOLAM
     Dosage: UNK
     Route: 048
     Dates: start: 20170307
  15. TOWATHIEM [Concomitant]
     Active Substance: ACETAMINOPHEN\CAFFEINE\PROMETHAZINE\SALICYLAMIDE
     Dosage: UNK
     Route: 048
     Dates: start: 20180109
  16. LIMETHASON [DEXAMETHASONE PALMITATE] [Concomitant]
     Dosage: UNK
     Dates: start: 20180109
  17. SARILUMAB [Concomitant]
     Active Substance: SARILUMAB
     Dosage: UNK
     Dates: start: 20180809
  18. FOLIAMIN [Concomitant]
     Active Substance: FOLIC ACID
     Route: 048
  19. TOSUFLOXACIN TOSILATE [Concomitant]
     Active Substance: TOSUFLOXACIN TOSYLATE
     Dosage: UNK
     Route: 048
     Dates: start: 20171121

REACTIONS (1)
  - Schizophrenia [Recovering/Resolving]

NARRATIVE: CASE EVENT DATE: 201810
